FAERS Safety Report 21193612 (Version 1)
Quarter: 2022Q3

REPORT INFORMATION
  Report Type: Other
  Country: CA (occurrence: CA)
  Receive Date: 20220810
  Receipt Date: 20220810
  Transmission Date: 20221027
  Serious: Yes (Disabling, Other)
  Sender: FDA-Public Use
  Company Number: CA-APOTEX-2022AP010811

PATIENT
  Age: 75 Year
  Sex: Female

DRUGS (1)
  1. ZOLEDRONIC ACID [Suspect]
     Active Substance: ZOLEDRONIC ACID
     Indication: Osteoporosis
     Dosage: UNK, 1 EVERY 1 YEAR
     Route: 041

REACTIONS (9)
  - Alopecia [Unknown]
  - Muscle spasms [Unknown]
  - Skin burning sensation [Unknown]
  - Sleep disorder [Unknown]
  - Musculoskeletal stiffness [Unknown]
  - Pain [Unknown]
  - Joint swelling [Unknown]
  - Pruritus [Unknown]
  - Rash [Unknown]
